FAERS Safety Report 9436837 (Version 3)
Quarter: 2013Q3

REPORT INFORMATION
  Report Type: Spontaneous
  Country: US (occurrence: US)
  Receive Date: 20130802
  Receipt Date: 20130927
  Transmission Date: 20140515
  Serious: Yes (Other)
  Sender: FDA-Public Use
  Company Number: US-PFIZER INC-2013221594

PATIENT
  Age: 83 Year
  Sex: Female

DRUGS (22)
  1. XELJANZ [Suspect]
     Indication: RHEUMATOID ARTHRITIS
     Dosage: 5 MG, 2X/DAY
     Route: 048
     Dates: start: 2013, end: 201306
  2. METHOTREXATE SODIUM [Suspect]
     Dosage: 0.8 ML, WEEKLY
     Route: 058
  3. PLAQUENIL [Suspect]
     Dosage: 200 MG, 2X/DAY
  4. REMICADE [Suspect]
     Dosage: UNK
     Route: 042
  5. DILAUDID [Suspect]
     Dosage: UNK
  6. PERCOCET [Suspect]
     Dosage: UNK
  7. PREDNISONE [Concomitant]
     Dosage: 5 MG, 1X/DAY (ONE AND HALF)
  8. PROLIA [Concomitant]
     Dosage: UNK
  9. LEVOXYL [Concomitant]
     Dosage: 112 UG, 1X/DAY (ONE)
  10. PRILOSEC [Concomitant]
     Dosage: 20 MG, 1X/DAY (ONE)
  11. HYDROCHLOROTHIAZIDE WITH TRIAMTERENE [Concomitant]
     Dosage: UNK
  12. MICARDIS [Concomitant]
     Dosage: 80 MG, 1X/DAY (ONE)
  13. MECLIZINE [Concomitant]
     Dosage: 25 MG, AS NEEDED
  14. FUROSEMIDE [Concomitant]
     Dosage: 20 MG, UNK
  15. VENLAFAXINE [Concomitant]
     Dosage: 37.5 MG, 1X/DAY (ONE)
  16. ENBREL [Concomitant]
     Dosage: 25MG /50MG
     Route: 058
  17. HUMIRA [Concomitant]
     Dosage: 40 MG, ONCE OR TWICE WEEKLY
     Route: 058
  18. IMURAN [Concomitant]
  19. ARAVA [Concomitant]
     Dosage: UNK
     Route: 048
  20. ORENCIA [Concomitant]
  21. ACTEMRA [Concomitant]
     Dosage: UNK
     Route: 042
  22. RITUXAN [Concomitant]
     Dosage: UNK
     Route: 042

REACTIONS (32)
  - Inappropriate schedule of drug administration [Unknown]
  - Arthralgia [Unknown]
  - Anaemia [Unknown]
  - Blood urea increased [Unknown]
  - Glomerular filtration rate decreased [Unknown]
  - Oedema [Unknown]
  - Drug dependence [Unknown]
  - Ankle fracture [Unknown]
  - Gait disturbance [Unknown]
  - Blood creatinine increased [Unknown]
  - Gastrointestinal disorder [Unknown]
  - Influenza [Unknown]
  - Drug ineffective [Unknown]
  - Back pain [Unknown]
  - Tenosynovitis [Unknown]
  - Muscular weakness [Unknown]
  - Dysstasia [Unknown]
  - Insomnia [Unknown]
  - Vision blurred [Unknown]
  - Fall [Unknown]
  - Contusion [Unknown]
  - Mass [Unknown]
  - Secretion discharge [Unknown]
  - Musculoskeletal stiffness [Unknown]
  - Feeling abnormal [Unknown]
  - Anxiety [Unknown]
  - Joint stiffness [Unknown]
  - Decubitus ulcer [Unknown]
  - Thrombosis [Unknown]
  - Neutrophil count increased [Unknown]
  - Wound [Unknown]
  - Gallbladder disorder [Unknown]
